FAERS Safety Report 6567791-5 (Version None)
Quarter: 2010Q1

REPORT INFORMATION
  Report Type: 
  Country: None (occurrence: None)
  Receive Date: 20100203
  Receipt Date: 20100120
  Transmission Date: 20100710
  Serious: No
  Sender: FDA-Public Use
  Company Number: US-JNJFOC-20100109527

PATIENT
  Sex: Male
  Weight: 111.13 kg

DRUGS (7)
  1. DURAGESIC-100 [Suspect]
     Indication: CHRONIC INFLAMMATORY DEMYELINATING POLYRADICULONEUROPATHY
     Dosage: NDC 504 580 9405
     Route: 062
  2. CELEXA [Concomitant]
     Indication: DEPRESSION
     Dosage: AT BED TIME
     Route: 048
  3. SEROQUEL [Concomitant]
     Indication: AGGRESSION
     Dosage: AT BED TIME
     Route: 048
  4. CYCLOBENZAPRINE [Concomitant]
     Indication: MUSCLE SPASMS
     Dosage: AS NEEDED
     Route: 048
  5. ALPRAZOLAM [Concomitant]
     Indication: ANXIETY
     Dosage: AS NEEDED
     Route: 048
  6. AMITRIPTYLINE HCL [Concomitant]
     Indication: SLEEP DISORDER
     Dosage: ONE AT BED TIME
     Route: 048
  7. ANDROGEL [Concomitant]
     Indication: MUSCLE MASS
     Route: 061

REACTIONS (4)
  - DRUG ADMINISTERED AT INAPPROPRIATE SITE [None]
  - INCORRECT DRUG ADMINISTRATION DURATION [None]
  - THERAPEUTIC RESPONSE DELAYED [None]
  - WRONG TECHNIQUE IN DRUG USAGE PROCESS [None]
